FAERS Safety Report 11910364 (Version 1)
Quarter: 2016Q1

REPORT INFORMATION
  Report Type: Spontaneous
  Country: US (occurrence: None)
  Receive Date: 20160111
  Receipt Date: 20160111
  Transmission Date: 20160526
  Serious: Yes (Hospitalization)
  Sender: FDA-Public Use
  Company Number: None

PATIENT
  Age: 47 Year
  Sex: Female
  Weight: 63.5 kg

DRUGS (1)
  1. ISOSULFAN BLUE 1% AFTON SCIENTIFIC FOR MYLAN [Suspect]
     Active Substance: ISOSULFAN BLUE
     Indication: MASTECTOMY
     Dosage: 4 ML ONCE - 4 X 1ML INJ PERIAREOLAR?

REACTIONS (3)
  - Cardio-respiratory arrest [None]
  - Contrast media reaction [None]
  - Carbon dioxide decreased [None]

NARRATIVE: CASE EVENT DATE: 20160106
